FAERS Safety Report 17709453 (Version 1)
Quarter: 2020Q2

REPORT INFORMATION
  Report Type: Spontaneous
  Country: FR (occurrence: FR)
  Receive Date: 20200427
  Receipt Date: 20200427
  Transmission Date: 20200714
  Serious: Yes (Hospitalization)
  Sender: FDA-Public Use
  Company Number: FR-SUN PHARMACEUTICAL INDUSTRIES LTD-2020RR-245103

PATIENT
  Age: 58 Year
  Sex: Female
  Weight: 102 kg

DRUGS (2)
  1. PANTOPRAZOL [Suspect]
     Active Substance: PANTOPRAZOLE SODIUM
     Indication: OESOPHAGITIS
     Dosage: 1 DOSAGE FORM, DAILY
     Route: 048
  2. OMEPRAZOLE MYLAN 20 MG, GELULE GASTRO-RESISTANTE [Suspect]
     Active Substance: OMEPRAZOLE
     Indication: OESOPHAGITIS
     Dosage: 1 DOSAGE FORM, DAILY
     Route: 048
     Dates: start: 20200125, end: 20200302

REACTIONS (3)
  - Partial seizures [Recovered/Resolved]
  - Hypoparathyroidism secondary [Recovering/Resolving]
  - Hypomagnesaemia [Recovering/Resolving]

NARRATIVE: CASE EVENT DATE: 20200124
